FAERS Safety Report 17912735 (Version 2)
Quarter: 2020Q3

REPORT INFORMATION
  Report Type: Spontaneous
  Country: JP (occurrence: JP)
  Receive Date: 20200618
  Receipt Date: 20200722
  Transmission Date: 20201103
  Serious: Yes (Other)
  Sender: FDA-Public Use
  Company Number: NVSJ2020JP005925

PATIENT
  Age: 52 Year
  Sex: Female

DRUGS (1)
  1. NEORAL [Suspect]
     Active Substance: CYCLOSPORINE
     Indication: MYASTHENIA GRAVIS
     Dosage: UNK
     Route: 048

REACTIONS (4)
  - Myasthenia gravis [Unknown]
  - Disease progression [Unknown]
  - Product use in unapproved indication [Unknown]
  - Dysphagia [Unknown]
